FAERS Safety Report 10501526 (Version 1)
Quarter: 2014Q4

REPORT INFORMATION
  Report Type: Spontaneous
  Country: AU (occurrence: None)
  Receive Date: 20141006
  Receipt Date: 20141006
  Transmission Date: 20150528
  Serious: Yes (Other)
  Sender: FDA-Public Use
  Company Number: None

PATIENT
  Sex: Male
  Weight: 96 kg

DRUGS (1)
  1. FINASTERIDE 5 MG [Suspect]
     Active Substance: FINASTERIDE
     Indication: HAIR DISORDER
     Dosage: 1/4 TABLET A DAY ONCE DAILY TAKEN BY MOUTH
     Route: 048
     Dates: start: 20140902, end: 20141002

REACTIONS (2)
  - Erectile dysfunction [None]
  - Loss of libido [None]

NARRATIVE: CASE EVENT DATE: 20141001
